FAERS Safety Report 9236058 (Version 1)
Quarter: 2013Q2

REPORT INFORMATION
  Report Type: Other
  Country: BR (occurrence: BR)
  Receive Date: 20130417
  Receipt Date: 20130417
  Transmission Date: 20140414
  Serious: Yes (Other)
  Sender: FDA-Public Use
  Company Number: BR-RANBAXY-2013US-67776

PATIENT
  Age: 83 Year
  Sex: Female

DRUGS (7)
  1. FLUOXETINE [Suspect]
     Indication: DEPRESSION
     Dosage: 20 MG
     Route: 065
  2. PANTOPRAZOLE [Suspect]
     Indication: GASTRITIS
     Dosage: 150 MG
     Route: 065
  3. SIMVASTATIN [Suspect]
     Indication: BLOOD CHOLESTEROL INCREASED
     Dosage: UNK
     Route: 065
  4. VALSARTAN [Suspect]
     Indication: PRODUCT USED FOR UNKNOWN INDICATION
     Dosage: 2 DOSAGE FORMS
     Route: 048
  5. APRESOLINE [Suspect]
     Indication: PRODUCT USED FOR UNKNOWN INDICATION
     Dosage: 25 MG, BID
     Route: 048
  6. APRESOLINE [Suspect]
     Indication: PRODUCT USED FOR UNKNOWN INDICATION
     Dosage: 50 MG, QID
  7. ANTAK [Suspect]
     Indication: GASTRITIS
     Dosage: 3 DOSAGE FORM IN ONE DAY
     Route: 048

REACTIONS (7)
  - Gastritis [Unknown]
  - Blood cholesterol increased [Unknown]
  - Vision blurred [Recovered/Resolved]
  - Diarrhoea [Recovered/Resolved]
  - Depression [Unknown]
  - Drug intolerance [Unknown]
  - Incorrect dose administered [Unknown]
